FAERS Safety Report 17952515 (Version 1)
Quarter: 2020Q2

REPORT INFORMATION
  Report Type: Spontaneous
  Country: GB (occurrence: GB)
  Receive Date: 20200626
  Receipt Date: 20200626
  Transmission Date: 20200714
  Serious: Yes (Other)
  Sender: FDA-Public Use
  Company Number: NVSC2020GB175240

PATIENT
  Age: 67 Year
  Sex: Female
  Weight: 48.07 kg

DRUGS (2)
  1. AMOXICILLIN. [Concomitant]
     Active Substance: AMOXICILLIN
     Indication: GINGIVITIS
     Dosage: 1500 MG, QD FOR 5 DAYS
     Route: 065
     Dates: start: 20200330
  2. METRONIDAZOLE. [Suspect]
     Active Substance: METRONIDAZOLE
     Indication: GINGIVITIS
     Dosage: 1200 MG, QD FOR 5 DAYS
     Route: 048
     Dates: start: 20200416

REACTIONS (4)
  - Dysgeusia [Recovering/Resolving]
  - Dizziness [Recovered/Resolved]
  - Vertigo [Recovered/Resolved]
  - Nausea [Recovered/Resolved]

NARRATIVE: CASE EVENT DATE: 20200417
